FAERS Safety Report 6968748-2 (Version None)
Quarter: 2010Q3

REPORT INFORMATION
  Report Type: 
  Country: None (occurrence: None)
  Receive Date: 20100907
  Receipt Date: 20100902
  Transmission Date: 20110219
  Serious: Yes (Other)
  Sender: FDA-Public Use
  Company Number: US-MERCK-1007USA01876

PATIENT
  Sex: Female

DRUGS (1)
  1. FOSAMAX [Suspect]
     Route: 048
     Dates: start: 20040101

REACTIONS (5)
  - DRUG INEFFECTIVE [None]
  - FALL [None]
  - HIP FRACTURE [None]
  - HYPOTENSION [None]
  - MALABSORPTION [None]
